FAERS Safety Report 13906344 (Version 1)
Quarter: 2017Q3

REPORT INFORMATION
  Report Type: Spontaneous
  Country: DE (occurrence: DE)
  Receive Date: 20170825
  Receipt Date: 20170825
  Transmission Date: 20171127
  Serious: Yes (Other)
  Sender: FDA-Public Use
  Company Number: DE-BAYER-2017-157226

PATIENT
  Age: 34 Year
  Sex: Female

DRUGS (5)
  1. METRONIDAZOL [Concomitant]
     Active Substance: METRONIDAZOLE
  2. CIPROBAY 400/200 MG/ML [Suspect]
     Active Substance: CIPROFLOXACIN HYDROCHLORIDE
     Indication: KLEBSIELLA INFECTION
  3. CIPROBAY 500 MG [Suspect]
     Active Substance: CIPROFLOXACIN
     Indication: KLEBSIELLA INFECTION
  4. NIFEDIPINE (SL) [Suspect]
     Active Substance: NIFEDIPINE
     Route: 048
  5. NORMAL SALINE [Concomitant]
     Active Substance: SODIUM CHLORIDE
     Dosage: DAILY DOSE 2400 ML

REACTIONS (4)
  - Maternal exposure during pregnancy [None]
  - Premature delivery [None]
  - Product use issue [None]
  - Off label use [None]
